FAERS Safety Report 6682357-4 (Version None)
Quarter: 2010Q2

REPORT INFORMATION
  Report Type: 
  Country: None (occurrence: None)
  Receive Date: 20100415
  Receipt Date: 20100408
  Transmission Date: 20101027
  Serious: Yes (Other)
  Sender: FDA-Public Use
  Company Number: BR-PFIZER INC-2010044465

PATIENT
  Age: 72 Year
  Sex: Female

DRUGS (4)
  1. XALATAN [Suspect]
     Dosage: UNK
     Route: 047
     Dates: start: 20020101
  2. CRESTOR [Concomitant]
     Indication: BLOOD CHOLESTEROL INCREASED
     Dosage: UNK
  3. OLCADIL [Concomitant]
     Dosage: UNK
  4. ATENOLOL [Concomitant]
     Indication: HYPERTENSION
     Dosage: UNK

REACTIONS (2)
  - CATARACT [None]
  - INTRAOCULAR PRESSURE INCREASED [None]
